FAERS Safety Report 10207816 (Version 1)
Quarter: 2014Q2

REPORT INFORMATION
  Report Type: Spontaneous
  Country: US (occurrence: US)
  Receive Date: 20140530
  Receipt Date: 20140530
  Transmission Date: 20141212
  Serious: No
  Sender: FDA-Public Use
  Company Number: US-GLAXOSMITHKLINE-A1060466A

PATIENT
  Age: 44 Year
  Sex: Female

DRUGS (3)
  1. VENTOLIN [Suspect]
     Indication: ASTHMA
     Dosage: 2PUFF AS REQUIRED
     Route: 055
     Dates: start: 20100428
  2. ADVAIR HFA [Suspect]
     Indication: ASTHMA
     Dosage: 1PUFF TWICE PER DAY
     Route: 055
     Dates: start: 20100428
  3. NO CONCURRENT MEDICATION [Concomitant]

REACTIONS (4)
  - Asthma [Not Recovered/Not Resolved]
  - Wheezing [Unknown]
  - Drug administration error [Unknown]
  - Dyspnoea [Unknown]
